FAERS Safety Report 15904720 (Version 2)
Quarter: 2019Q1

REPORT INFORMATION
  Report Type: Spontaneous
  Country: US (occurrence: US)
  Receive Date: 20190204
  Receipt Date: 20190208
  Transmission Date: 20190417
  Serious: Yes (Hospitalization, Other)
  Sender: FDA-Public Use
  Company Number: US-ASTRAZENECA-2019SE17701

PATIENT
  Age: 8859 Day
  Sex: Female
  Weight: 111.1 kg

DRUGS (4)
  1. PREDNISONE. [Concomitant]
     Active Substance: PREDNISONE
  2. FASENRA [Suspect]
     Active Substance: BENRALIZUMAB
     Indication: ASTHMA
     Route: 058
     Dates: start: 20190115
  3. FLOVENT [Concomitant]
     Active Substance: FLUTICASONE PROPIONATE
  4. DOXYLAMINE [Concomitant]
     Active Substance: DOXYLAMINE

REACTIONS (6)
  - Pruritus [Recovered/Resolved]
  - Throat tightness [Recovered/Resolved]
  - Hypotension [Unknown]
  - Swelling [Recovered/Resolved]
  - Tachycardia [Unknown]
  - Influenza like illness [Unknown]

NARRATIVE: CASE EVENT DATE: 20190115
